FAERS Safety Report 17683490 (Version 2)
Quarter: 2020Q4

REPORT INFORMATION
  Report Type: Spontaneous
  Country: JP (occurrence: JP)
  Receive Date: 20200420
  Receipt Date: 20201221
  Transmission Date: 20210113
  Serious: Yes (Death, Life-Threatening, Disabling, Other)
  Sender: FDA-Public Use
  Company Number: JP-ROCHE-2587114

PATIENT
  Age: 54 Year
  Sex: Female
  Weight: 40 kg

DRUGS (2)
  1. TECENTRIQ [Suspect]
     Active Substance: ATEZOLIZUMAB
     Indication: BREAST CANCER
     Dosage: DOSAGE IS UNCERTAIN.
     Route: 041
  2. PACLITAXEL ALBUMIN [Concomitant]
     Active Substance: PACLITAXEL
     Indication: BREAST CANCER
     Dosage: DOSAGE IS UNCERTAIN.
     Route: 041

REACTIONS (8)
  - Altered state of consciousness [Recovered/Resolved with Sequelae]
  - Pyrexia [Recovered/Resolved]
  - Infected skin ulcer [Unknown]
  - Cholangitis [Unknown]
  - Hypothyroidism [Recovering/Resolving]
  - Blood bilirubin increased [Recovering/Resolving]
  - Disease progression [Fatal]
  - Liver disorder [Recovering/Resolving]

NARRATIVE: CASE EVENT DATE: 2020
